FAERS Safety Report 12945716 (Version 1)
Quarter: 2016Q4

REPORT INFORMATION
  Report Type: Spontaneous
  Country: US (occurrence: US)
  Receive Date: 20161115
  Receipt Date: 20161115
  Transmission Date: 20170207
  Serious: No
  Sender: FDA-Public Use
  Company Number: US-ETHYPHARM USA CORP-EY-BP-US-2016-048

PATIENT
  Age: 23 Year

DRUGS (1)
  1. SUBUTEX [Suspect]
     Active Substance: BUPRENORPHINE HYDROCHLORIDE

REACTIONS (7)
  - Vein disorder [None]
  - Paraesthesia [None]
  - Burning sensation [None]
  - Intentional product use issue [None]
  - Intentional product misuse [None]
  - Skin tightness [None]
  - Swelling [None]
